FAERS Safety Report 13122646 (Version 1)
Quarter: 2017Q1

REPORT INFORMATION
  Report Type: Spontaneous
  Country: SE (occurrence: SE)
  Receive Date: 20170117
  Receipt Date: 20170117
  Transmission Date: 20170428
  Serious: Yes (Disabling)
  Sender: FDA-Public Use
  Company Number: SE-TEVA-728290ISR

PATIENT
  Age: 40 Year
  Sex: Female

DRUGS (3)
  1. RISPERDAL [Suspect]
     Active Substance: RISPERIDONE
     Route: 048
  2. CISORDINOL-ACUTARD [Suspect]
     Active Substance: ZUCLOPENTHIXOL ACETATE
     Route: 030
  3. OLANZAPINE. [Suspect]
     Active Substance: OLANZAPINE
     Route: 048

REACTIONS (2)
  - Motor dysfunction [Recovered/Resolved with Sequelae]
  - Speech disorder [Recovered/Resolved with Sequelae]
